FAERS Safety Report 12864247 (Version 3)
Quarter: 2025Q2

REPORT INFORMATION
  Report Type: Report from Study
  Country: JP (occurrence: JP)
  Receive Date: 20161020
  Receipt Date: 20250617
  Transmission Date: 20250717
  Serious: Yes (Other)
  Sender: ALEXION PHARMACEUTICALS
  Company Number: JP-ALXN-A201602453AA

PATIENT
  Age: 7 Month
  Weight: 6.2 kg

DRUGS (5)
  1. STRENSIQ [Suspect]
     Active Substance: ASFOTASE ALFA
     Indication: Hypophosphatasia
     Dosage: 2 MILLIGRAM/KILOGRAM, TIW
  2. PRANLUKAST [Concomitant]
     Active Substance: PRANLUKAST
     Indication: Hypophosphatasia
     Dosage: 20 MILLIGRAM, BID
  3. PRANLUKAST [Concomitant]
     Active Substance: PRANLUKAST
     Dosage: 40 MILLIGRAM, BID
  4. Mucosal [Concomitant]
     Indication: Hypophosphatasia
     Dosage: 5.4 MILLIGRAM, TID
  5. Mucosal [Concomitant]
     Dosage: 1.8 MILLIGRAM, TID

REACTIONS (2)
  - Erythema multiforme [Recovered/Resolved]
  - Injection site reaction [Recovered/Resolved]
